FAERS Safety Report 6375895-5 (Version None)
Quarter: 2009Q3

REPORT INFORMATION
  Report Type: 
  Country: None (occurrence: None)
  Receive Date: 20090924
  Receipt Date: 20090921
  Transmission Date: 20100115
  Serious: Yes (Hospitalization)
  Sender: FDA-Public Use
  Company Number: US-JNJCH-2009025301

PATIENT
  Age: 52 Year
  Sex: Female
  Weight: 95.3 kg

DRUGS (2)
  1. SUDAFED S.A. [Suspect]
     Indication: SINUS CONGESTION
     Dosage: TEXT:1 TABLET 4 TIMES DAILY
     Route: 048
     Dates: start: 20090907, end: 20090907
  2. ANTIHYPERTENSIVES [Concomitant]
     Indication: DRUG USE FOR UNKNOWN INDICATION
     Dosage: TEXT:UNSEPCIFIED
     Route: 065

REACTIONS (2)
  - OEDEMA MOUTH [None]
  - SWELLING FACE [None]
